FAERS Safety Report 5042250-X (Version None)
Quarter: 2006Q2

REPORT INFORMATION
  Report Type: 
  Country: None (occurrence: None)
  Receive Date: 20060627
  Receipt Date: 20060611
  Transmission Date: 20061013
  Serious: Yes (Hospitalization, Other)
  Sender: FDA-Public Use
  Company Number: 2003165716US

PATIENT
  Age: 35 Year
  Sex: Female
  Weight: 74.8435 kg

DRUGS (2)
  1. CELEBREX [Suspect]
     Indication: CARPAL TUNNEL SYNDROME
     Dosage: 200 MG (100 MG, 2 IN 1 D), ORAL
     Route: 048
     Dates: start: 20010801, end: 20020110
  2. CELEBREX [Suspect]
     Indication: PAIN
     Dosage: 200 MG (100 MG, 2 IN 1 D), ORAL
     Route: 048
     Dates: start: 20010801, end: 20020110

REACTIONS (12)
  - ARRHYTHMIA [None]
  - BLOOD PRESSURE INCREASED [None]
  - CARDIAC DISORDER [None]
  - CHEST PAIN [None]
  - DYSPNOEA [None]
  - FALL [None]
  - FATIGUE [None]
  - LUNG DISORDER [None]
  - MUSCLE ATROPHY [None]
  - MYOCARDIAL ISCHAEMIA [None]
  - SINUS BRADYCARDIA [None]
  - VENTRICULAR SEPTAL DEFECT [None]
